FAERS Safety Report 23315382 (Version 1)
Quarter: 2023Q4

REPORT INFORMATION
  Report Type: Spontaneous
  Country: US (occurrence: US)
  Receive Date: 20231219
  Receipt Date: 20231219
  Transmission Date: 20240110
  Serious: No
  Sender: FDA-Public Use
  Company Number: US-ORG100016242-2022002950

PATIENT
  Weight: 46.6 kg

DRUGS (1)
  1. EXPAREL [Suspect]
     Active Substance: BUPIVACAINE
     Indication: Product used for unknown indication
     Route: 065
     Dates: start: 20221220, end: 20221220

REACTIONS (2)
  - Incorrect dose administered [Unknown]
  - No adverse event [Unknown]

NARRATIVE: CASE EVENT DATE: 20221220
